FAERS Safety Report 9067810 (Version 2)
Quarter: 2013Q1

REPORT INFORMATION
  Report Type: Spontaneous
  Country: BE (occurrence: BE)
  Receive Date: 20130128
  Receipt Date: 20130221
  Transmission Date: 20140127
  Serious: Yes (Hospitalization, Other)
  Sender: FDA-Public Use
  Company Number: BE-ELI_LILLY_AND_COMPANY-BE201203003905

PATIENT
  Age: 44 Year
  Sex: Male

DRUGS (1)
  1. ZYPREXA [Suspect]
     Indication: PSYCHOTIC DISORDER
     Dosage: 10 MG, UNK
     Route: 048
     Dates: start: 200810, end: 20090413

REACTIONS (10)
  - Hallucination [Unknown]
  - Psychotic disorder [Unknown]
  - Hyperprolactinaemia [Unknown]
  - Libido decreased [Not Recovered/Not Resolved]
  - Erectile dysfunction [Not Recovered/Not Resolved]
  - Depressed mood [Not Recovered/Not Resolved]
  - Weight increased [Unknown]
  - Increased appetite [Unknown]
  - Intentional drug misuse [Unknown]
  - Inappropriate schedule of drug administration [Unknown]
